FAERS Safety Report 5453612-0 (Version None)
Quarter: 2007Q3

REPORT INFORMATION
  Report Type: 
  Country: None (occurrence: None)
  Receive Date: 20070917
  Receipt Date: 20070912
  Transmission Date: 20080115
  Serious: Yes (Other)
  Sender: FDA-Public Use
  Company Number: PHEH2007US12265

PATIENT
  Sex: Male

DRUGS (2)
  1. DIOVAN [Suspect]
     Dosage: 160MG, UNK
  2. NORVASC [Suspect]
     Dosage: UNK, UNK

REACTIONS (4)
  - HYPERHIDROSIS [None]
  - HYPOAESTHESIA [None]
  - VISION BLURRED [None]
  - VISUAL FIELD DEFECT [None]
